FAERS Safety Report 8115760-6 (Version None)
Quarter: 2012Q1

REPORT INFORMATION
  Report Type: 
  Country: None (occurrence: None)
  Receive Date: 20120201
  Receipt Date: 20120118
  Transmission Date: 20120608
  Serious: Yes (Other)
  Sender: FDA-Public Use
  Company Number: 1000021144

PATIENT
  Age: 21 Year
  Sex: Female

DRUGS (5)
  1. ESCITALOPRAM OXALATE [Suspect]
     Indication: ANXIETY
     Dosage: 10 MG (10 MG, 1 IN 1 D), ORAL
     Route: 048
     Dates: start: 20101125, end: 20101229
  2. ESCITALOPRAM OXALATE [Suspect]
     Indication: ANXIETY
     Dosage: 20 MG (10 MG, 2 IN 1 D), ORAL
     Route: 048
     Dates: start: 20101230, end: 20110519
  3. RISPERIDONE [Suspect]
     Indication: DISTURBANCE IN SOCIAL BEHAVIOUR
     Dosage: 1.5 MG (1.5 MG, 1 IN 1 D), ORAL
     Route: 048
     Dates: start: 20100708, end: 20100929
  4. ORPHENADRINE (ORPHANEDRINE) (ORPHENADRINE) [Concomitant]
  5. RISPERIDONE [Suspect]
     Indication: DISTURBANCE IN SOCIAL BEHAVIOUR
     Dosage: VARIABLE DOSES BETWEEN 0.25MG AND 1 MG DAILY, ORAL
     Route: 048
     Dates: start: 20100415, end: 20100707

REACTIONS (4)
  - OCULOGYRIC CRISIS [None]
  - ANXIETY [None]
  - DISEASE RECURRENCE [None]
  - DISTURBANCE IN SOCIAL BEHAVIOUR [None]
